FAERS Safety Report 11528230 (Version 1)
Quarter: 2015Q3

REPORT INFORMATION
  Report Type: Spontaneous
  Country: US (occurrence: US)
  Receive Date: 20150921
  Receipt Date: 20150921
  Transmission Date: 20151125
  Serious: Yes (Hospitalization)
  Sender: FDA-Public Use
  Company Number: US-ACTELION-A-US2014-107230

PATIENT
  Age: 39 Year
  Sex: Male

DRUGS (3)
  1. TRACLEER [Suspect]
     Active Substance: BOSENTAN
     Indication: COR PULMONALE CHRONIC
     Dosage: UNK
     Route: 048
  2. VENTAVIS [Suspect]
     Active Substance: ILOPROST
     Indication: COR PULMONALE CHRONIC
     Dosage: 2.5 MCG, UNK
     Route: 055
     Dates: start: 20141021, end: 20141021
  3. VENTAVIS [Suspect]
     Active Substance: ILOPROST
     Dosage: 5 MCG,
     Route: 055
     Dates: start: 201410

REACTIONS (5)
  - Dizziness [Unknown]
  - Pain in jaw [Unknown]
  - Flushing [Unknown]
  - Hot flush [Unknown]
  - Headache [Unknown]

NARRATIVE: CASE EVENT DATE: 20141021
